FAERS Safety Report 21951770 (Version 1)
Quarter: 2023Q1

REPORT INFORMATION
  Report Type: Spontaneous
  Country: CH (occurrence: CH)
  Receive Date: 20230203
  Receipt Date: 20230203
  Transmission Date: 20230417
  Serious: Yes (Other)
  Sender: FDA-Public Use
  Company Number: None

PATIENT
  Age: 81 Year
  Sex: Female

DRUGS (12)
  1. LORAZEPAM [Suspect]
     Active Substance: LORAZEPAM
     Dosage: BEGINNING DEC2022 OR JAN2023
     Dates: start: 202212
  2. ABILIFY [Suspect]
     Active Substance: ARIPIPRAZOLE
     Dosage: 5 ML, DAILY
     Dates: start: 20220106
  3. AKINETON [Suspect]
     Active Substance: BIPERIDEN HYDROCHLORIDE
     Dosage: 2 MG, DAILY
     Dates: start: 202212, end: 20230110
  4. DAFALGAN [Suspect]
     Active Substance: ACETAMINOPHEN
     Dosage: 2 G, DAILY
     Dates: start: 202301
  5. LISINOPRIL [Concomitant]
     Active Substance: LISINOPRIL
     Dosage: 10 MG, DAILY
  6. METFORMIN HYDROCHLORIDE [Concomitant]
     Active Substance: METFORMIN HYDROCHLORIDE
     Dosage: 1000 MG, DAILY (CURRENTLY PAUSED)
  7. POTASSIUM CHLORIDE [Concomitant]
     Active Substance: POTASSIUM CHLORIDE
     Dosage: 20 MMOL, DAILY
  8. MAGNESIUM DIASPORAL [MAGNESIUM CITRATE] [Concomitant]
     Dosage: 300 MG, DAILY
  9. HERBALS [Concomitant]
     Active Substance: HERBALS
     Dosage: 20 DROP, DAILY
  10. CHOLECALCIFEROL [Concomitant]
     Active Substance: CHOLECALCIFEROL
     Dosage: 40 DROP, DAILY
  11. ENOXAPARIN SODIUM [Concomitant]
     Active Substance: ENOXAPARIN SODIUM
     Dosage: 40 MG, DAILY
     Route: 058
  12. NOVORAPID [Concomitant]
     Active Substance: INSULIN ASPART
     Dosage: SC ACCORDING TO THE SCHEME
     Route: 058

REACTIONS (3)
  - Agranulocytosis [Unknown]
  - Leukopenia [Unknown]
  - COVID-19 [Unknown]

NARRATIVE: CASE EVENT DATE: 20230107
